FAERS Safety Report 4954722-4 (Version None)
Quarter: 2006Q1

REPORT INFORMATION
  Report Type: 
  Country: None (occurrence: None)
  Receive Date: 20060322
  Receipt Date: 20060313
  Transmission Date: 20060701
  Serious: Yes (Hospitalization, Other)
  Sender: FDA-Public Use
  Company Number: 200610231BFR

PATIENT
  Age: 44 Year
  Sex: Female
  Weight: 48.4 kg

DRUGS (14)
  1. SORAFENIB [Suspect]
     Indication: METASTATIC RENAL CELL CARCINOMA
     Dosage: SEE IMAGE
     Route: 048
     Dates: start: 20050728, end: 20050801
  2. SORAFENIB [Suspect]
     Indication: METASTATIC RENAL CELL CARCINOMA
     Dosage: SEE IMAGE
     Route: 048
     Dates: start: 20060201, end: 20060223
  3. SORAFENIB [Suspect]
     Indication: METASTATIC RENAL CELL CARCINOMA
     Dosage: SEE IMAGE
     Route: 048
     Dates: start: 20050801
  4. OESTROGENIC DRUG [Concomitant]
  5. DI-ANTALVIC [Concomitant]
  6. SOLUPRED [Concomitant]
  7. OXYNORM [Concomitant]
  8. MOPRAL [Concomitant]
  9. CETIRIZINE HCL [Concomitant]
  10. KESTINE [Concomitant]
  11. DOLIPRANE [Concomitant]
  12. FORTIMEL [Concomitant]
  13. PROVIDEXTRA [Concomitant]
  14. UNSPECIFIED ANTIBIOTIC [Concomitant]

REACTIONS (2)
  - CHEST PAIN [None]
  - RETINAL VEIN THROMBOSIS [None]
